FAERS Safety Report 17828484 (Version 1)
Quarter: 2020Q2

REPORT INFORMATION
  Report Type: Spontaneous
  Country: US (occurrence: US)
  Receive Date: 20200527
  Receipt Date: 20200527
  Transmission Date: 20200714
  Serious: Yes (Hospitalization)
  Sender: FDA-Public Use
  Company Number: None

PATIENT
  Age: 80 Year
  Sex: Male

DRUGS (1)
  1. PRAVASTATIN (PRAVASTATIN NA 80MG TAB) [Suspect]
     Active Substance: PRAVASTATIN SODIUM
     Indication: HYPERLIPIDAEMIA
     Route: 048
     Dates: start: 20070918, end: 20190405

REACTIONS (2)
  - Rhabdomyolysis [None]
  - Myalgia [None]

NARRATIVE: CASE EVENT DATE: 20190405
